FAERS Safety Report 5598134-1 (Version None)
Quarter: 2008Q1

REPORT INFORMATION
  Report Type: 
  Country: None (occurrence: None)
  Receive Date: 20080122
  Receipt Date: 20080114
  Transmission Date: 20080703
  Serious: Yes (Hospitalization)
  Sender: FDA-Public Use
  Company Number: IT-BAYER-200717128GPV

PATIENT
  Age: 85 Year
  Sex: Female

DRUGS (1)
  1. ASPIRIN [Suspect]
     Indication: PROPHYLAXIS
     Dosage: TOTAL DAILY DOSE: 100 MG  UNIT DOSE: 100 MG
     Route: 048
     Dates: start: 20070101, end: 20071021

REACTIONS (2)
  - CEREBRAL HAEMORRHAGE [None]
  - HAEMATOMA [None]
